FAERS Safety Report 5758048-0 (Version None)
Quarter: 2008Q2

REPORT INFORMATION
  Report Type: 
  Country: None (occurrence: None)
  Receive Date: 20080602
  Receipt Date: 20080602
  Transmission Date: 20081010
  Serious: Yes (Hospitalization)
  Sender: FDA-Public Use
  Company Number: None

PATIENT
  Age: 68 Year
  Sex: Male
  Weight: 78 kg

DRUGS (1)
  1. AMPHOTERICIN B [Suspect]
     Indication: MUCORMYCOSIS
     Dates: start: 20080509, end: 20080511

REACTIONS (1)
  - RENAL FAILURE ACUTE [None]
